FAERS Safety Report 6273284-5 (Version None)
Quarter: 2009Q3

REPORT INFORMATION
  Report Type: 
  Country: None (occurrence: None)
  Receive Date: 20090720
  Receipt Date: 20090709
  Transmission Date: 20100115
  Serious: Yes (Other)
  Sender: FDA-Public Use
  Company Number: CA-JNJFOC-20090703617

PATIENT
  Sex: Female
  Weight: 64.5 kg

DRUGS (5)
  1. REMICADE [Suspect]
     Dosage: 10 MG/KG
     Route: 042
  2. REMICADE [Suspect]
     Route: 042
  3. REMICADE [Suspect]
     Indication: CROHN'S DISEASE
     Route: 042
  4. AZATHIOPRINE [Concomitant]
  5. PREDNISONE [Concomitant]
     Dosage: WEANING DOWN
     Route: 048

REACTIONS (3)
  - ASTHENIA [None]
  - MALAISE [None]
  - TACHYCARDIA [None]
